FAERS Safety Report 17924960 (Version 1)
Quarter: 2020Q2

REPORT INFORMATION
  Report Type: Spontaneous
  Country: JP (occurrence: JP)
  Receive Date: 20200622
  Receipt Date: 20200622
  Transmission Date: 20200714
  Serious: Yes (Hospitalization)
  Sender: FDA-Public Use
  Company Number: JP-009507513-2006JPN007641

PATIENT
  Age: 70 Year
  Sex: Male

DRUGS (4)
  1. NITRAZEPAM [Concomitant]
     Active Substance: NITRAZEPAM
     Indication: SCHIZOPHRENIA
     Dosage: UNK
     Route: 048
  2. ARIPIPRAZOLE. [Suspect]
     Active Substance: ARIPIPRAZOLE
     Indication: SCHIZOPHRENIA
     Dosage: UNK
     Route: 048
  3. BIPERIDEN HYDROCHLORIDE [Concomitant]
     Active Substance: BIPERIDEN HYDROCHLORIDE
     Indication: SCHIZOPHRENIA
     Dosage: UNK
     Route: 048
  4. REFLEX [Suspect]
     Active Substance: MIRTAZAPINE
     Indication: SCHIZOPHRENIA
     Dosage: UNK
     Route: 048

REACTIONS (2)
  - Suicide attempt [Unknown]
  - Neuroleptic malignant syndrome [Recovering/Resolving]
